FAERS Safety Report 4737117-8 (Version None)
Quarter: 2005Q3

REPORT INFORMATION
  Report Type: 
  Country: None (occurrence: None)
  Receive Date: 20050728
  Receipt Date: 20050603
  Transmission Date: 20060218
  Serious: No
  Sender: FDA-Public Use
  Company Number: 200514708US

PATIENT
  Age: 47 Year
  Sex: Female

DRUGS (3)
  1. KETEK [Suspect]
     Indication: NASOPHARYNGITIS
     Dosage: 800 MG QD PO
     Route: 048
     Dates: start: 20050526, end: 20050531
  2. ALTACE [Concomitant]
  3. SIBUTRAMINE HYDROCHLORIDE (MERIDIA) [Concomitant]

REACTIONS (1)
  - VISION BLURRED [None]
